FAERS Safety Report 6067443-4 (Version None)
Quarter: 2009Q1

REPORT INFORMATION
  Report Type: 
  Country: None (occurrence: None)
  Receive Date: 20090205
  Receipt Date: 20090126
  Transmission Date: 20090719
  Serious: Yes (Hospitalization, Other)
  Sender: FDA-Public Use
  Company Number: TR-PFIZER INC-2009161371

PATIENT

DRUGS (4)
  1. METHYLPREDNISOLONE ACETATE AND METHYLPREDNISOLONE AND METHYLPREDNISOLO [Suspect]
     Indication: RHEUMATIC FEVER
     Dosage: 2 MG/KG, UNK
  2. BENZATHINE BENZYLPENICILLIN [Concomitant]
     Indication: PROPHYLAXIS
  3. DIGOXIN [Concomitant]
     Dosage: 0.25 MG, UNK
     Route: 048
  4. FUROSEMIDE [Concomitant]
     Dosage: 1 MG/KG, UNK
     Route: 048

REACTIONS (2)
  - DIABETIC KETOACIDOSIS [None]
  - HYPERGLYCAEMIA [None]
